FAERS Safety Report 13411273 (Version 3)
Quarter: 2019Q4

REPORT INFORMATION
  Report Type: Spontaneous
  Country: US (occurrence: US)
  Receive Date: 20170406
  Receipt Date: 20191217
  Transmission Date: 20200122
  Serious: No
  Sender: FDA-Public Use
  Company Number: US-JNJFOC-20170307028

PATIENT
  Sex: Male

DRUGS (10)
  1. RISPERDAL [Suspect]
     Active Substance: RISPERIDONE
     Route: 048
     Dates: start: 20080616
  2. RISPERDAL [Suspect]
     Active Substance: RISPERIDONE
     Dosage: 2 TABLETS AT BED TIME
     Route: 048
     Dates: start: 20100202
  3. RISPERDAL [Suspect]
     Active Substance: RISPERIDONE
     Indication: BIPOLAR DISORDER
     Route: 048
     Dates: start: 20070514, end: 20080521
  4. RISPERDAL [Suspect]
     Active Substance: RISPERIDONE
     Route: 048
     Dates: end: 20110610
  5. RISPERDAL [Suspect]
     Active Substance: RISPERIDONE
     Dosage: AT VARYING DOSES OF 0.25 MG TO 1 MG
     Route: 048
     Dates: start: 20100702, end: 20110509
  6. RISPERDAL [Suspect]
     Active Substance: RISPERIDONE
     Dosage: 2 TABLETS AT BED TIME
     Route: 048
     Dates: start: 20090810
  7. RISPERDAL [Suspect]
     Active Substance: RISPERIDONE
     Dosage: AT BED TIME
     Route: 048
     Dates: start: 20100614
  8. RISPERDAL [Suspect]
     Active Substance: RISPERIDONE
     Indication: BIPOLAR DISORDER
     Route: 048
     Dates: start: 20080719, end: 20090709
  9. RISPERDAL [Suspect]
     Active Substance: RISPERIDONE
     Route: 048
     Dates: start: 20090916, end: 20091117
  10. RISPERDAL [Suspect]
     Active Substance: RISPERIDONE
     Route: 048
     Dates: start: 20100404, end: 20100508

REACTIONS (2)
  - Emotional distress [Unknown]
  - Gynaecomastia [Unknown]
